FAERS Safety Report 25259371 (Version 1)
Quarter: 2025Q2

REPORT INFORMATION
  Report Type: Spontaneous
  Country: CN (occurrence: CN)
  Receive Date: 20250501
  Receipt Date: 20250501
  Transmission Date: 20250717
  Serious: Yes (Hospitalization, Other)
  Sender: BAXTER
  Company Number: None

PATIENT
  Age: 51 Year
  Sex: Male
  Weight: 75.5 kg

DRUGS (7)
  1. CYCLOPHOSPHAMIDE [Suspect]
     Active Substance: CYCLOPHOSPHAMIDE
     Indication: Diffuse large B-cell lymphoma
     Dosage: 700 MG, QD (ONCE A DAY)
     Route: 041
     Dates: start: 20250317, end: 20250318
  2. SODIUM CHLORIDE [Suspect]
     Active Substance: SODIUM CHLORIDE
     Indication: Medication dilution
     Dosage: 700 ML, QD (0.9% WITH RITUXIMAB)
     Route: 041
     Dates: start: 20250316, end: 20250316
  3. SODIUM CHLORIDE [Suspect]
     Active Substance: SODIUM CHLORIDE
     Dosage: 250 ML, QD (0.9% WITH CYCLOPHOSPHAMIDE)
     Route: 041
     Dates: start: 20250317, end: 20250318
  4. DEXTROSE [Suspect]
     Active Substance: DEXTROSE MONOHYDRATE
     Indication: Medication dilution
     Dosage: 250 ML, QD (5% WITH DOXORUBICIN HYDROCHLORIDE LIPOSOME)
     Route: 041
     Dates: start: 20250317, end: 20250318
  5. RITUXIMAB [Suspect]
     Active Substance: RITUXIMAB
     Indication: Diffuse large B-cell lymphoma
     Dosage: 700 MG, QD (ONCE A DAY)
     Route: 041
     Dates: start: 20250316, end: 20250316
  6. VINCRISTINE SULFATE [Suspect]
     Active Substance: VINCRISTINE SULFATE
     Indication: Diffuse large B-cell lymphoma
     Dosage: 2 MG, QD (ONCE A DAY)
     Route: 041
     Dates: start: 20250317, end: 20250317
  7. DOXORUBICIN HYDROCHLORIDE [Suspect]
     Active Substance: DOXORUBICIN HYDROCHLORIDE
     Indication: Diffuse large B-cell lymphoma
     Dosage: 30 MG, QD
     Route: 041
     Dates: start: 20250317, end: 20250318

REACTIONS (3)
  - White blood cell count decreased [Recovering/Resolving]
  - Neutrophil count decreased [Recovering/Resolving]
  - Myelosuppression [Recovering/Resolving]

NARRATIVE: CASE EVENT DATE: 20250405
